FAERS Safety Report 6871156-6 (Version None)
Quarter: 2010Q3

REPORT INFORMATION
  Report Type: 
  Country: None (occurrence: None)
  Receive Date: 20100723
  Receipt Date: 20100713
  Transmission Date: 20110219
  Serious: Yes (Other)
  Sender: FDA-Public Use
  Company Number: US-ROCHE-710832

PATIENT
  Sex: Male
  Weight: 71.2 kg

DRUGS (2)
  1. BEVACIZUMAB [Suspect]
     Indication: PRODUCT USED FOR UNKNOWN INDICATION
     Route: 065
  2. CAPECITABINE [Suspect]
     Dosage: DOSE: 2150 AM/PM X 14 DAYS
     Route: 048
     Dates: start: 20100101, end: 20100601

REACTIONS (1)
  - PALMAR-PLANTAR ERYTHRODYSAESTHESIA SYNDROME [None]
